FAERS Safety Report 9141628 (Version 1)
Quarter: 2013Q1

REPORT INFORMATION
  Report Type: Spontaneous
  Country: US (occurrence: US)
  Receive Date: 20130305
  Receipt Date: 20130305
  Transmission Date: 20140127
  Serious: No
  Sender: FDA-Public Use
  Company Number: US-AMGEN-USASP2013010522

PATIENT
  Age: 65 Year
  Sex: Female

DRUGS (1)
  1. ENBREL [Suspect]
     Indication: RHEUMATOID ARTHRITIS
     Dosage: 50 MG, QWK
     Dates: start: 20110408

REACTIONS (5)
  - Sjogren^s syndrome [Unknown]
  - Muscle strain [Recovered/Resolved]
  - Nausea [Recovered/Resolved]
  - Pleurisy [Recovered/Resolved]
  - Bronchitis [Recovered/Resolved]
